FAERS Safety Report 4483365-4 (Version None)
Quarter: 2004Q4

REPORT INFORMATION
  Report Type: 
  Country: None (occurrence: None)
  Receive Date: 20041020
  Receipt Date: 20041005
  Transmission Date: 20050328
  Serious: Yes (Hospitalization)
  Sender: FDA-Public Use
  Company Number: FR_041004933

PATIENT
  Age: 75 Year
  Sex: Female

DRUGS (12)
  1. DOBUTREX [Suspect]
     Indication: VENTRICULAR FAILURE
     Dates: start: 20040722, end: 20040722
  2. CALCIPARINE [Concomitant]
  3. XENETIX (IOBITRIDOL) [Concomitant]
  4. PREVISCAN (FLUINDIONE) [Concomitant]
  5. PLAVIX [Concomitant]
  6. MONO TILDIEM LP [Concomitant]
  7. METFORMIN HCL [Concomitant]
  8. LASIX [Concomitant]
  9. NITROGLYCERIN [Concomitant]
  10. COVERSYL (PERINDOPRIL ERBUMINE) [Concomitant]
  11. CANDENSIEL (BISOPROLOL FUMARATE) [Concomitant]
  12. ALDACTONE [Concomitant]

REACTIONS (5)
  - EXANTHEM [None]
  - INFLAMMATION [None]
  - LYMPHOPENIA [None]
  - PYREXIA [None]
  - RASH MACULO-PAPULAR [None]
